FAERS Safety Report 16593782 (Version 2)
Quarter: 2019Q3

REPORT INFORMATION
  Report Type: Spontaneous
  Country: PT (occurrence: PT)
  Receive Date: 20190718
  Receipt Date: 20190805
  Transmission Date: 20191004
  Serious: Yes (Disabling)
  Sender: FDA-Public Use
  Company Number: PT-MYLANLABS-2019M1067159

PATIENT
  Sex: Male

DRUGS (1)
  1. DESLORATADINE. [Suspect]
     Active Substance: DESLORATADINE
     Indication: RHINITIS
     Dosage: 5 MILLIGRAM, QD
     Route: 060
     Dates: start: 20181224, end: 20181224

REACTIONS (5)
  - Product solubility abnormal [Unknown]
  - Pain [Recovered/Resolved]
  - Oedema [Recovered/Resolved]
  - Inflammation [Recovered/Resolved]
  - Incorrect route of product administration [Unknown]

NARRATIVE: CASE EVENT DATE: 20181225
